FAERS Safety Report 19165879 (Version 7)
Quarter: 2022Q2

REPORT INFORMATION
  Report Type: Spontaneous
  Country: ES (occurrence: ES)
  Receive Date: 20210421
  Receipt Date: 20220509
  Transmission Date: 20220721
  Serious: Yes (Hospitalization, Disabling, Other)
  Sender: FDA-Public Use
  Company Number: ES-009507513-1804ESP008984

PATIENT
  Age: 65 Year
  Sex: Male

DRUGS (16)
  1. SINEMET [Suspect]
     Active Substance: CARBIDOPA\LEVODOPA
     Dosage: STRENGTH :25/250 (UNITS NOT PROVIDED)
     Route: 048
     Dates: start: 201804
  2. CARBIDOPA\LEVODOPA [Suspect]
     Active Substance: CARBIDOPA\LEVODOPA
     Dosage: UNK; MEDICATION ERROR
     Route: 048
     Dates: start: 201804
  3. NARDIL [Suspect]
     Active Substance: PHENELZINE SULFATE
     Indication: Depression
     Dosage: DECREASED TO A MINIMUM DOSE OF 15 (UNITS NOT PROVIDED)
     Dates: start: 1993, end: 2018
  4. NARDIL [Suspect]
     Active Substance: PHENELZINE SULFATE
     Indication: Bipolar I disorder
     Dosage: UNK
     Route: 065
     Dates: start: 201806
  5. NARDIL [Suspect]
     Active Substance: PHENELZINE SULFATE
     Dosage: DECREASED TO A MINIMUM DOSE OF 15 (UNITS NOT PROVIDED)
     Dates: start: 2018
  6. PRAMIPEXOLE [Suspect]
     Active Substance: PRAMIPEXOLE
     Indication: Parkinson^s disease
     Dosage: 1.05 MILLIGRAM, EVERY DAY
     Route: 048
  7. MOCLOBEMIDE [Suspect]
     Active Substance: MOCLOBEMIDE
     Indication: Depression
     Dosage: UNK
  8. MOCLOBEMIDE [Suspect]
     Active Substance: MOCLOBEMIDE
     Dosage: UNK
  9. DEANOL PIDOLATE\HEPTAMINOL HYDROCHLORIDE [Suspect]
     Active Substance: DEANOL PIDOLATE\HEPTAMINOL HYDROCHLORIDE
     Indication: Product used for unknown indication
     Dosage: UNK
     Dates: start: 2021
  10. ONGENTYS [Suspect]
     Active Substance: OPICAPONE
     Dosage: TOOK 4 TABLETS
  11. ONGENTYS [Suspect]
     Active Substance: OPICAPONE
     Dosage: 1 TABLET AT 8 IN THE AFTERNOON
     Route: 048
  12. ALPRAZOLAM [Concomitant]
     Active Substance: ALPRAZOLAM
     Indication: Depression
     Dosage: 0.5 MILLIGRAM, EVERYDAY AS NECESSARY
     Route: 048
  13. ALPRAZOLAM [Concomitant]
     Active Substance: ALPRAZOLAM
     Dosage: 0.5 MILLIGRAM, EVERYDAY AS NECESSARY
     Route: 048
  14. RIVOTRIL [Concomitant]
     Active Substance: CLONAZEPAM
     Indication: Product used for unknown indication
     Dosage: 2 MILLIGRAM, QD
     Route: 048
  15. MOTILIUM [Concomitant]
     Active Substance: DOMPERIDONE
     Indication: Oesophageal disorder
     Dosage: UNK
     Route: 065
  16. MOTILIUM [Concomitant]
     Active Substance: DOMPERIDONE
     Dosage: UNK
     Route: 065

REACTIONS (52)
  - Hallucination [Unknown]
  - Gait disturbance [Unknown]
  - Erythema [Unknown]
  - Tooth injury [Unknown]
  - Ageusia [Not Recovered/Not Resolved]
  - Vertigo [Unknown]
  - Miosis [Not Recovered/Not Resolved]
  - Eyelid ptosis [Not Recovered/Not Resolved]
  - Gastrointestinal disorder [Unknown]
  - Saliva altered [Unknown]
  - Onychomalacia [Unknown]
  - Back pain [Unknown]
  - Madarosis [Not Recovered/Not Resolved]
  - Nervousness [Unknown]
  - Sensation of foreign body [Unknown]
  - Dizziness [Unknown]
  - Alopecia [Not Recovered/Not Resolved]
  - Anxiety [Unknown]
  - Somnolence [Not Recovered/Not Resolved]
  - Muscle rigidity [Unknown]
  - Agitation [Unknown]
  - Weight decreased [Unknown]
  - Bruxism [Unknown]
  - Urinary incontinence [Recovering/Resolving]
  - Swelling of eyelid [Not Recovered/Not Resolved]
  - Asthenia [Unknown]
  - Urinary incontinence [Recovering/Resolving]
  - Hot flush [Unknown]
  - Dry mouth [Unknown]
  - Dizziness [Unknown]
  - Dizziness [Not Recovered/Not Resolved]
  - Dizziness [Unknown]
  - Sleep disorder [Not Recovered/Not Resolved]
  - Depressed mood [Unknown]
  - Dyspnoea [Unknown]
  - Diplopia [Not Recovered/Not Resolved]
  - Parkinson^s disease [Unknown]
  - Underdose [Recovered/Resolved]
  - Intentional product misuse [Unknown]
  - Contraindicated product prescribed [Unknown]
  - Therapeutic response unexpected [Unknown]
  - Product prescribing error [Unknown]
  - Fatigue [Not Recovered/Not Resolved]
  - Asphyxia [Unknown]
  - Speech disorder [Unknown]
  - Chest discomfort [Unknown]
  - Malaise [Unknown]
  - Anxiety [Unknown]
  - Gait inability [Unknown]
  - Asphyxia [Unknown]
  - Nervousness [Unknown]
  - Dyspnoea [Unknown]

NARRATIVE: CASE EVENT DATE: 20170101
